FAERS Safety Report 13577969 (Version 1)
Quarter: 2017Q2

REPORT INFORMATION
  Report Type: Spontaneous
  Country: RU (occurrence: RU)
  Receive Date: 20170524
  Receipt Date: 20170524
  Transmission Date: 20170830
  Serious: Yes (Other)
  Sender: FDA-Public Use
  Company Number: RU-FRESENIUS KABI-FK201704412

PATIENT
  Age: 58 Year
  Sex: Male

DRUGS (2)
  1. IDARUBICIN HYDROCHLORIDE (MANUFACTURER UNKNOWN) [Suspect]
     Active Substance: IDARUBICIN HYDROCHLORIDE
     Indication: ACUTE PROMYELOCYTIC LEUKAEMIA
     Route: 065
  2. TRETINOIN. [Suspect]
     Active Substance: TRETINOIN
     Indication: ACUTE PROMYELOCYTIC LEUKAEMIA

REACTIONS (5)
  - Acute respiratory failure [Unknown]
  - Quadriplegia [Unknown]
  - Septic shock [Unknown]
  - Pneumocystis jirovecii pneumonia [Unknown]
  - Cytopenia [Unknown]
